FAERS Safety Report 8180520-7 (Version None)
Quarter: 2012Q1

REPORT INFORMATION
  Report Type: 
  Country: None (occurrence: None)
  Receive Date: 20120229
  Receipt Date: 20120217
  Transmission Date: 20120608
  Serious: Yes (Life-Threatening)
  Sender: FDA-Public Use
  Company Number: TCI2011A03618

PATIENT
  Age: 62 Year
  Sex: Male

DRUGS (6)
  1. AMARYL [Concomitant]
  2. LIVALO [Concomitant]
  3. ACTOS [Suspect]
     Indication: TYPE 2 DIABETES MELLITUS
     Dosage: 15 MG (15 MG,1 IN 1 D) PER ORAL
     Route: 048
     Dates: start: 20070302, end: 20071206
  4. GLACTIVE (SITAGLIPTIN PHOSPHATE) [Concomitant]
  5. BASEN OD TABLETS 0.2 (VOGLIBOSE) [Concomitant]
  6. METFORMIN HCL [Concomitant]

REACTIONS (1)
  - BLADDER CANCER [None]
